FAERS Safety Report 7938895-7 (Version None)
Quarter: 2011Q4

REPORT INFORMATION
  Report Type: 
  Country: None (occurrence: None)
  Receive Date: 20111124
  Receipt Date: 20111118
  Transmission Date: 20120403
  Serious: Yes (Other)
  Sender: FDA-Public Use
  Company Number: CHPA2011US016558

PATIENT
  Age: 74 Year
  Sex: Female

DRUGS (2)
  1. PREVACID 24 HR [Suspect]
     Indication: GASTROOESOPHAGEAL REFLUX DISEASE
     Dosage: 15 MG, QD
     Route: 048
     Dates: start: 20100101, end: 20111005
  2. PREVACID 24 HR [Suspect]
     Dosage: 30 MG, BID
     Route: 048
     Dates: start: 20111005

REACTIONS (5)
  - OFF LABEL USE [None]
  - OVERDOSE [None]
  - BARRETT'S OESOPHAGUS [None]
  - WRONG TECHNIQUE IN DRUG USAGE PROCESS [None]
  - INCORRECT DRUG ADMINISTRATION DURATION [None]
